FAERS Safety Report 5334716-X (Version None)
Quarter: 2007Q2

REPORT INFORMATION
  Report Type: 
  Country: None (occurrence: None)
  Receive Date: 20070306
  Receipt Date: 20060810
  Transmission Date: 20071010
  Serious: Yes (Other)
  Sender: FDA-Public Use
  Company Number: A03200605069

PATIENT
  Age: 69 Year
  Sex: Male

DRUGS (5)
  1. PLAVIX [Suspect]
     Indication: MYOCARDIAL INFARCTION
     Dosage: 75 MG QD - ORAL
     Route: 048
     Dates: start: 20051101, end: 20060701
  2. PLAVIX [Suspect]
     Indication: STENT PLACEMENT
     Dosage: 75 MG QD - ORAL
     Route: 048
     Dates: start: 20051101, end: 20060701
  3. ACETYLSALICYLIC ACID SRT [Suspect]
     Indication: MYOCARDIAL INFARCTION
     Dosage: NI UNK - ORAL
     Route: 048
     Dates: start: 20051101
  4. ACETYLSALICYLIC ACID SRT [Suspect]
     Indication: STENT PLACEMENT
     Dosage: NI UNK - ORAL
     Route: 048
     Dates: start: 20051101
  5. COUMADIN [Suspect]
     Indication: ATRIAL FIBRILLATION
     Dosage: NI UNK - ORAL
     Route: 048
     Dates: start: 20051201

REACTIONS (3)
  - CONFUSIONAL STATE [None]
  - HAEMATOMA [None]
  - SUBDURAL HAEMATOMA [None]
